FAERS Safety Report 6137198-3 (Version None)
Quarter: 2009Q1

REPORT INFORMATION
  Report Type: 
  Country: None (occurrence: None)
  Receive Date: 20090330
  Receipt Date: 20090320
  Transmission Date: 20090719
  Serious: Yes (Other)
  Sender: FDA-Public Use
  Company Number: US-SANOFI-SYNTHELABO-A03200901255

PATIENT

DRUGS (2)
  1. PLAVIX [Suspect]
     Indication: DRUG USE FOR UNKNOWN INDICATION
     Route: 048
  2. PLAVIX [Suspect]
     Route: 048

REACTIONS (3)
  - NO THERAPEUTIC RESPONSE [None]
  - OVERDOSE [None]
  - VASCULAR OCCLUSION [None]
